FAERS Safety Report 16534523 (Version 3)
Quarter: 2019Q3

REPORT INFORMATION
  Report Type: Report from Study
  Country: US (occurrence: US)
  Receive Date: 20190705
  Receipt Date: 20190822
  Transmission Date: 20191004
  Serious: Yes (Hospitalization)
  Sender: FDA-Public Use
  Company Number: US-OTSUKA-2018_037734

PATIENT
  Age: 56 Year
  Sex: Male

DRUGS (6)
  1. TRAMADOL. [Concomitant]
     Active Substance: TRAMADOL
     Indication: PRODUCT USED FOR UNKNOWN INDICATION
     Dosage: UNK
     Route: 065
  2. LISINOPRIL. [Concomitant]
     Active Substance: LISINOPRIL
     Indication: HYPERTENSION
     Dosage: UNK
     Route: 065
  3. TOLVAPTAN [Suspect]
     Active Substance: TOLVAPTAN
     Dosage: 45 MG, IN THE MORNING
     Route: 048
     Dates: start: 20190122, end: 20190403
  4. TOLVAPTAN [Suspect]
     Active Substance: TOLVAPTAN
     Indication: CONGENITAL CYSTIC KIDNEY DISEASE
     Dosage: 45 MG, IN THE MORNING
     Route: 048
     Dates: start: 20180801, end: 20181213
  5. TOLVAPTAN [Suspect]
     Active Substance: TOLVAPTAN
     Dosage: 15 MG, QD 8 HOURS LATER
     Route: 048
     Dates: start: 20180801, end: 20181213
  6. TOLVAPTAN [Suspect]
     Active Substance: TOLVAPTAN
     Dosage: 15 MG, QD 8 HOURS LATER
     Route: 048
     Dates: start: 20190122, end: 20190403

REACTIONS (5)
  - Rotator cuff syndrome [Not Recovered/Not Resolved]
  - Surgery [Not Recovered/Not Resolved]
  - Liver injury [Unknown]
  - Infection [Recovered/Resolved]
  - Joint effusion [Not Recovered/Not Resolved]

NARRATIVE: CASE EVENT DATE: 20181123
